FAERS Safety Report 4658856-3 (Version None)
Quarter: 2005Q2

REPORT INFORMATION
  Report Type: 
  Country: None (occurrence: None)
  Receive Date: 20050511
  Receipt Date: 20050210
  Transmission Date: 20051028
  Serious: Yes (Hospitalization)
  Sender: FDA-Public Use
  Company Number: US-MERCK-0502USA01616

PATIENT
  Age: 74 Year
  Sex: Male
  Weight: 80 kg

DRUGS (12)
  1. VIOXX [Suspect]
     Indication: SPONDYLITIS
     Route: 048
     Dates: start: 19990915, end: 20040901
  2. HYTRIN [Concomitant]
     Route: 065
     Dates: start: 19950101
  3. ECOTRIN [Concomitant]
     Route: 065
  4. TRAZODONE HYDROCHLORIDE [Concomitant]
     Indication: DEPRESSION
     Route: 065
  5. ZOCOR [Concomitant]
     Route: 065
  6. TOPROL-XL [Concomitant]
     Route: 065
     Dates: start: 20030101
  7. NORVASC [Concomitant]
     Route: 065
     Dates: start: 20020101
  8. TRUSOPT [Concomitant]
     Route: 065
  9. PILOCARPINE [Concomitant]
     Route: 065
  10. CAPTOPRIL [Concomitant]
     Route: 065
  11. HYDROCHLOROTHIAZIDE [Concomitant]
     Route: 065
  12. LEXAPRO [Concomitant]
     Indication: DEPRESSION
     Route: 065

REACTIONS (21)
  - ABDOMINAL PAIN [None]
  - ANXIETY [None]
  - ARTHRALGIA [None]
  - CAROTID ARTERY ATHEROMA [None]
  - CEREBROVASCULAR ACCIDENT [None]
  - COLONIC POLYP [None]
  - DEHYDRATION [None]
  - DEPRESSION [None]
  - DIARRHOEA [None]
  - DIASTOLIC DYSFUNCTION [None]
  - DIZZINESS [None]
  - FATIGUE [None]
  - HAEMORRHOIDS [None]
  - HEPATIC CYST [None]
  - HYPOVOLAEMIA [None]
  - INGUINAL HERNIA [None]
  - NAUSEA [None]
  - SYNCOPE VASOVAGAL [None]
  - VISION BLURRED [None]
  - VOMITING [None]
  - WEIGHT DECREASED [None]
